FAERS Safety Report 8595068-5 (Version None)
Quarter: 2012Q3

REPORT INFORMATION
  Report Type: 
  Country: None (occurrence: None)
  Receive Date: 20120815
  Receipt Date: 20120808
  Transmission Date: 20120928
  Serious: Yes (Death, Hospitalization)
  Sender: FDA-Public Use
  Company Number: US-CELGENEUS-163-21880-12070355

PATIENT
  Sex: Male

DRUGS (13)
  1. LASIX [Concomitant]
     Indication: FLUID OVERLOAD
     Dosage: 20 MILLIGRAM
     Route: 048
     Dates: start: 20120608, end: 20120612
  2. DEXAMETHASONE [Concomitant]
     Dosage: 2.8571 MILLIGRAM
     Route: 065
  3. NAMENDA [Concomitant]
     Dosage: 20
     Route: 065
  4. TRAMADOL HCL [Concomitant]
     Route: 065
  5. POTASSIUM CHLORIDE [Concomitant]
     Dosage: 10
     Route: 065
  6. DONEPEZIL HCL [Concomitant]
     Indication: DEMENTIA
     Dosage: 10 MILLIGRAM
     Route: 048
     Dates: start: 20110324, end: 20120218
  7. LEXAPRO [Concomitant]
     Dosage: 10 MILLIGRAM
     Route: 065
  8. FERROUS SULFATE TAB [Concomitant]
     Route: 065
  9. REVLIMID [Suspect]
     Dosage: 15 MILLIGRAM
     Route: 048
     Dates: start: 20120604, end: 20120612
  10. REVLIMID [Suspect]
     Indication: MULTIPLE MYELOMA
     Dosage: 15 MILLIGRAM
     Route: 048
     Dates: start: 20120406
  11. DIGOXIN [Concomitant]
     Dosage: .125 MILLIGRAM
     Route: 048
     Dates: start: 20120308, end: 20120612
  12. WARFARIN SODIUM [Concomitant]
     Dosage: 5 MILLIGRAM
     Route: 048
     Dates: start: 20120214, end: 20120612
  13. DILTIAZEM [Concomitant]
     Dosage: 120 MILLIGRAM
     Route: 048
     Dates: start: 20120306, end: 20120612

REACTIONS (4)
  - PERITONITIS [None]
  - GASTROINTESTINAL PERFORATION [None]
  - RENAL FAILURE [None]
  - DEHYDRATION [None]
